FAERS Safety Report 5676089-9 (Version None)
Quarter: 2008Q1

REPORT INFORMATION
  Report Type: 
  Country: None (occurrence: None)
  Receive Date: 20080321
  Receipt Date: 20080312
  Transmission Date: 20080703
  Serious: Yes (Hospitalization)
  Sender: FDA-Public Use
  Company Number: JP-AVENTIS-200712443JP

PATIENT
  Age: 76 Year
  Sex: Male
  Weight: 55 kg

DRUGS (3)
  1. TAXOTERE [Suspect]
     Indication: LUNG ADENOCARCINOMA RECURRENT
     Dosage: DOSE: 40 MG/2 WEEKS
     Route: 041
     Dates: start: 20070821, end: 20070821
  2. GEMZAR [Concomitant]
     Indication: LUNG ADENOCARCINOMA RECURRENT
     Dosage: DOSE: 1600 MG/2 WEEKS
     Route: 041
     Dates: start: 20070821, end: 20070821
  3. UFT [Concomitant]
     Route: 048
     Dates: start: 20051206, end: 20070725

REACTIONS (2)
  - ANAEMIA HAEMOLYTIC AUTOIMMUNE [None]
  - HAEMOGLOBIN DECREASED [None]
